FAERS Safety Report 5393296-3 (Version None)
Quarter: 2007Q3

REPORT INFORMATION
  Report Type: 
  Country: None (occurrence: None)
  Receive Date: 20070723
  Receipt Date: 20070716
  Transmission Date: 20080115
  Serious: Yes (Other)
  Sender: FDA-Public Use
  Company Number: PHNU2007DE02528

PATIENT
  Sex: Female

DRUGS (2)
  1. AREDIA [Suspect]
     Indication: COMPLEX REGIONAL PAIN SYNDROME
     Dosage: 6 INFUSIONS BETWEEN 2000 AND 2001
     Route: 042
     Dates: start: 20000101, end: 20010101
  2. ASPIRIN [Concomitant]
     Route: 048

REACTIONS (3)
  - METASTASES TO BONE [None]
  - METASTATIC NEOPLASM [None]
  - NUCLEAR MAGNETIC RESONANCE IMAGING ABNORMAL [None]
